FAERS Safety Report 12477328 (Version 1)
Quarter: 2016Q2

REPORT INFORMATION
  Report Type: Spontaneous
  Country: JP (occurrence: JP)
  Receive Date: 20160617
  Receipt Date: 20160617
  Transmission Date: 20160815
  Serious: Yes (Death, Other)
  Sender: FDA-Public Use
  Company Number: JP-009507513-1510JPN005164

PATIENT
  Age: 49 Year
  Sex: Male
  Weight: 42 kg

DRUGS (7)
  1. HYDROCORTONE [Concomitant]
     Active Substance: HYDROCORTISONE
     Dosage: DAILY DOSAGE UNKNOWN
     Route: 042
     Dates: start: 20151005, end: 20151005
  2. SEVOFLURANE. [Concomitant]
     Active Substance: SEVOFLURANE
     Indication: GENERAL ANAESTHESIA
     Dosage: DAILY DOSAGE UNKNOWN
     Route: 055
     Dates: start: 20151005, end: 20151005
  3. POPSCAINE [Suspect]
     Active Substance: LEVOBUPIVACAINE HYDROCHLORIDE
     Indication: ANALGESIC THERAPY
     Dosage: 27 ML, QD
     Route: 058
     Dates: start: 20151005, end: 20151005
  4. PROPOFOL. [Concomitant]
     Active Substance: PROPOFOL
     Indication: INDUCTION OF ANAESTHESIA
     Dosage: DAILY DOSAGE UNKNOWN
     Route: 051
     Dates: start: 20151005, end: 20151005
  5. ESLAX INTRAVENOUS 25MG/2.5ML [Concomitant]
     Active Substance: ROCURONIUM BROMIDE
     Indication: NEUROMUSCULAR BLOCKING THERAPY
     Dosage: DIALY DOSAGE UNKNOWN
     Route: 051
     Dates: start: 20151005, end: 20151005
  6. BRIDION [Suspect]
     Active Substance: SUGAMMADEX
     Indication: NEUROMUSCULAR BLOCKADE REVERSAL
     Dosage: 200 MG, QD
     Route: 042
     Dates: start: 20151005, end: 20151005
  7. REMIFENTANIL HYDROCHLORIDE [Concomitant]
     Active Substance: REMIFENTANIL HYDROCHLORIDE
     Dosage: DAILY DOSAGE UNKNOWN
     Route: 051
     Dates: start: 20151005, end: 20151005

REACTIONS (4)
  - Hypoventilation [Fatal]
  - Stress cardiomyopathy [Fatal]
  - Acidosis [Unknown]
  - Ventricular fibrillation [Fatal]

NARRATIVE: CASE EVENT DATE: 20151005
